FAERS Safety Report 18572445 (Version 16)
Quarter: 2022Q4

REPORT INFORMATION
  Report Type: Spontaneous
  Country: US (occurrence: US)
  Receive Date: 20201203
  Receipt Date: 20221124
  Transmission Date: 20230113
  Serious: Yes (Hospitalization, Other)
  Sender: FDA-Public Use
  Company Number: US-GSKCCFUS-CASE-00909259_AE-53321

PATIENT

DRUGS (16)
  1. ZEJULA [Suspect]
     Active Substance: NIRAPARIB
     Indication: Ovarian cancer
     Dosage: UNK
     Route: 048
     Dates: end: 201909
  2. ZEJULA [Suspect]
     Active Substance: NIRAPARIB
     Dosage: 300 MG, QD
     Dates: start: 20210122
  3. ZEJULA [Suspect]
     Active Substance: NIRAPARIB
     Dosage: 200 MG, QD
     Route: 048
     Dates: start: 20210517
  4. ZEJULA [Suspect]
     Active Substance: NIRAPARIB
     Dosage: 200 MG, QD
  5. ZEJULA [Suspect]
     Active Substance: NIRAPARIB
     Dosage: UNK
  6. ZEJULA [Suspect]
     Active Substance: NIRAPARIB
     Dosage: 200 MG, QD
     Route: 048
  7. ZEJULA [Suspect]
     Active Substance: NIRAPARIB
     Dosage: 100 MG, QD
     Route: 048
  8. ZEJULA [Suspect]
     Active Substance: NIRAPARIB
     Dosage: 200 MG, QD
     Route: 048
  9. ZEJULA [Suspect]
     Active Substance: NIRAPARIB
     Dosage: 100 MG, QD
     Route: 048
  10. ZEJULA [Suspect]
     Active Substance: NIRAPARIB
     Dosage: 200 MG, QD
  11. ZEJULA [Suspect]
     Active Substance: NIRAPARIB
     Dosage: UNK UNK, Z (100 MG QOD, ALTERNATING WITH 200 MG QOD)
  12. ZEJULA [Suspect]
     Active Substance: NIRAPARIB
     Dosage: UNK UNK, Z (100 MG DAILY ON SUN, TUES, THURS, SAT AND 200 MG DAILY ON MON, WED, FRI)
  13. ZEJULA [Suspect]
     Active Substance: NIRAPARIB
     Dosage: UNK UNK, Z (100MG ON SUN, TUES, THURS, SAT- 200MG ON MON, WED, FRI)
  14. ZEJULA [Suspect]
     Active Substance: NIRAPARIB
     Dosage: UNK UNK, Z (100MG DAILY MON, WED, FRI /200MG DAILY SUN, TUES, THURS, SAT)
  15. ZEJULA [Suspect]
     Active Substance: NIRAPARIB
     Dosage: UNK, (100MG DAILY MONDAY, WEDNESDAY, FRIDAY; 200MG DAILY SUNDAY, TUESDAY, THURSDAY, SATURDAY)
  16. ZEJULA [Suspect]
     Active Substance: NIRAPARIB
     Dosage: 100 MG, QD

REACTIONS (22)
  - Arthritis infective [Unknown]
  - End stage renal disease [Unknown]
  - Nausea [Recovered/Resolved]
  - Sleep terror [Recovered/Resolved]
  - Stomatitis [Recovered/Resolved]
  - Laboratory test abnormal [Recovering/Resolving]
  - Blood pressure increased [Recovered/Resolved]
  - Heart rate increased [Recovered/Resolved]
  - Lymphoedema [Not Recovered/Not Resolved]
  - Illness [Unknown]
  - Blood calcium decreased [Unknown]
  - Red blood cell count decreased [Not Recovered/Not Resolved]
  - Weight increased [Unknown]
  - Abdominal discomfort [Not Recovered/Not Resolved]
  - Carbohydrate antigen 125 increased [Recovering/Resolving]
  - Blood urea nitrogen/creatinine ratio increased [Unknown]
  - Rib fracture [Unknown]
  - Road traffic accident [Unknown]
  - Bone loss [Unknown]
  - Reticulocytosis [Unknown]
  - Off label use [Unknown]
  - Incorrect dose administered [Unknown]

NARRATIVE: CASE EVENT DATE: 20220825
